FAERS Safety Report 7083726-3 (Version None)
Quarter: 2010Q4

REPORT INFORMATION
  Report Type: 
  Country: None (occurrence: None)
  Receive Date: 20101104
  Receipt Date: 20101027
  Transmission Date: 20110411
  Serious: Yes (Hospitalization, Congenital Anomaly, Other)
  Sender: FDA-Public Use
  Company Number: DE-ABBOTT-10P-062-0660771-00

PATIENT
  Sex: Male
  Weight: 3.54 kg

DRUGS (4)
  1. HUMIRA [Suspect]
     Indication: DRUG EXPOSURE DURING PREGNANCY
     Route: 064
  2. KONAKION [Concomitant]
     Indication: PRODUCT USED FOR UNKNOWN INDICATION
     Dates: start: 20100601, end: 20100601
  3. D-FLUORETTE [Concomitant]
     Indication: PRODUCT USED FOR UNKNOWN INDICATION
     Route: 048
     Dates: start: 20100701
  4. FERROSANOL [Concomitant]
     Indication: ANAEMIA PROPHYLAXIS
     Route: 048
     Dates: start: 20100701, end: 20100803

REACTIONS (10)
  - ANAEMIA [None]
  - ANAEMIA NEONATAL [None]
  - DRUG EXPOSURE DURING PREGNANCY [None]
  - HAEMOLYSIS [None]
  - HYDROCELE [None]
  - HYPERBILIRUBINAEMIA NEONATAL [None]
  - MATERNAL DRUGS AFFECTING FOETUS [None]
  - OMPHALITIS [None]
  - TRANSFUSION [None]
  - TREATMENT FAILURE [None]
